FAERS Safety Report 9054990 (Version 1)
Quarter: 2013Q1

REPORT INFORMATION
  Report Type: Report from Study
  Country: US (occurrence: US)
  Receive Date: 20130208
  Receipt Date: 20130208
  Transmission Date: 20140127
  Serious: Yes (Hospitalization)
  Sender: FDA-Public Use
  Company Number: US-ROCHE-1185439

PATIENT
  Age: 51 Year
  Sex: Female
  Weight: 49 kg

DRUGS (4)
  1. BEVACIZUMAB [Suspect]
     Indication: OVARIAN CANCER
     Dosage: OVER 30-90 MINS ON DAY 1, LAST DOSE: 30/AUG/2012
     Route: 042
     Dates: start: 20120712
  2. CARBOPLATIN [Suspect]
     Indication: OVARIAN CANCER
     Dosage: AUC = 6 OVER 30 MINS ON DAY 1, LAST DOSE: 30/AUG/2012
     Route: 042
  3. PACLITAXEL [Suspect]
     Indication: OVARIAN CANCER
     Dosage: OVER 1 HR ON DAYS 1, 8, 15 LAST DOSE: 06/SEP/2012
     Route: 042
  4. VELIPARIB [Suspect]
     Indication: OVARIAN CANCER
     Dosage: CYCLES 2-6 ON DAY 2-5, LAST DOSE: 04/SEP/2012
     Route: 048

REACTIONS (11)
  - Hypoalbuminaemia [Unknown]
  - Hyponatraemia [Unknown]
  - Neutrophil count decreased [Unknown]
  - Hepatic failure [Unknown]
  - Abdominal pain [Unknown]
  - Ascites [Unknown]
  - Constipation [Unknown]
  - Nausea [Unknown]
  - Vomiting [Unknown]
  - Anaemia [Unknown]
  - Oedema peripheral [Unknown]
